FAERS Safety Report 5448093-7 (Version None)
Quarter: 2007Q3

REPORT INFORMATION
  Report Type: 
  Country: None (occurrence: None)
  Receive Date: 20070801
  Receipt Date: 20070503
  Transmission Date: 20080115
  Serious: No
  Sender: FDA-Public Use
  Company Number: 2007-US-000221

PATIENT
  Age: 12 Year
  Sex: Female
  Weight: 26.4 kg

DRUGS (1)
  1. INCRELEX [Suspect]
     Dosage: 120 UG/KG, BID, SUBCUTANEOUS
     Route: 058
     Dates: start: 20070327

REACTIONS (9)
  - ANGINA UNSTABLE [None]
  - ASTHENIA [None]
  - DIZZINESS [None]
  - GAIT DISTURBANCE [None]
  - HYPERHIDROSIS [None]
  - HYPOGLYCAEMIA [None]
  - NAUSEA [None]
  - NERVOUSNESS [None]
  - PALLOR [None]
